FAERS Safety Report 9523193 (Version 4)
Quarter: 2013Q4

REPORT INFORMATION
  Report Type: Spontaneous
  Country: JP (occurrence: JP)
  Receive Date: 20130913
  Receipt Date: 20131112
  Transmission Date: 20140711
  Serious: Yes (Life-Threatening)
  Sender: FDA-Public Use
  Company Number: JP-GLAXOSMITHKLINE-B0922250A

PATIENT
  Age: 84 Year
  Sex: Female
  Weight: 37 kg

DRUGS (6)
  1. VALTREX [Suspect]
     Indication: HERPES ZOSTER
     Dosage: 1000MG THREE TIMES PER DAY
     Route: 048
     Dates: start: 20130831, end: 20130906
  2. PERDIPINE [Concomitant]
     Indication: HYPERTENSION
     Dosage: 20MG TWICE PER DAY
     Route: 048
  3. ALLEGRA [Concomitant]
     Indication: RHINITIS ALLERGIC
     Dosage: 60MG TWICE PER DAY
     Route: 048
  4. BERIZYM [Concomitant]
     Indication: GASTRITIS
     Dosage: .5G TWICE PER DAY
     Route: 048
  5. BAYASPIRIN [Concomitant]
     Indication: CEREBRAL INFARCTION
     Dosage: 100MG PER DAY
     Route: 048
  6. AMOBAN [Concomitant]
     Indication: INSOMNIA
     Route: 048

REACTIONS (9)
  - Renal impairment [Recovered/Resolved]
  - Altered state of consciousness [Recovering/Resolving]
  - Toxic encephalopathy [Unknown]
  - Musculoskeletal stiffness [Recovering/Resolving]
  - Drug level increased [Unknown]
  - Dyslalia [Recovering/Resolving]
  - Performance status decreased [Unknown]
  - Hypophagia [Unknown]
  - Dehydration [Unknown]
